FAERS Safety Report 7542744-9 (Version None)
Quarter: 2011Q2

REPORT INFORMATION
  Report Type: 
  Country: None (occurrence: None)
  Receive Date: 20110613
  Receipt Date: 20110606
  Transmission Date: 20111010
  Serious: Yes (Other)
  Sender: FDA-Public Use
  Company Number: A0924235A

PATIENT
  Age: 71 Year
  Sex: Female

DRUGS (6)
  1. ISOSORBIDE [Concomitant]
  2. LEVOTHYROXINE SODIUM [Concomitant]
  3. HYDROXYZINE [Concomitant]
  4. PLAVIX [Concomitant]
  5. CITALOPRAM [Concomitant]
  6. ADVAIR DISKUS 100/50 [Suspect]
     Indication: ASTHMA
     Dosage: 1PUFF TWICE PER DAY
     Route: 055
     Dates: start: 19970101

REACTIONS (4)
  - PRODUCT QUALITY ISSUE [None]
  - ASTHMA [None]
  - CHEST DISCOMFORT [None]
  - DYSPNOEA [None]
